FAERS Safety Report 19002806 (Version 1)
Quarter: 2021Q1

REPORT INFORMATION
  Report Type: Spontaneous
  Country: AT (occurrence: AT)
  Receive Date: 20210312
  Receipt Date: 20210312
  Transmission Date: 20210420
  Serious: No
  Sender: FDA-Public Use
  Company Number: AT-CELGENEUS-AUT-20210206227

PATIENT
  Age: 30 Year
  Sex: Female

DRUGS (1)
  1. ZEPOSIA [Suspect]
     Active Substance: OZANIMOD HYDROCHLORIDE
     Indication: MULTIPLE SCLEROSIS
     Dosage: .92 MILLIGRAM
     Route: 048
     Dates: start: 2020

REACTIONS (2)
  - Liver function test increased [Not Recovered/Not Resolved]
  - Paresis [Recovered/Resolved]

NARRATIVE: CASE EVENT DATE: 202011
